FAERS Safety Report 10218647 (Version 1)
Quarter: 2014Q2

REPORT INFORMATION
  Report Type: Spontaneous
  Country: US (occurrence: US)
  Receive Date: 20140605
  Receipt Date: 20140605
  Transmission Date: 20141212
  Serious: No
  Sender: FDA-Public Use
  Company Number: US-PFIZER INC-2014150502

PATIENT
  Age: 20 Year
  Sex: Female
  Weight: 61.68 kg

DRUGS (2)
  1. ADVIL ALLERGY AND CONGESTION RELIEF [Suspect]
     Indication: HYPERSENSITIVITY
     Dosage: UNK, EVERY 4 HOURS
     Route: 048
     Dates: start: 20140513, end: 20140517
  2. ADVIL ALLERGY AND CONGESTION RELIEF [Suspect]
     Indication: NASAL CONGESTION

REACTIONS (1)
  - Palpitations [Not Recovered/Not Resolved]
